FAERS Safety Report 22281005 (Version 1)
Quarter: 2023Q2

REPORT INFORMATION
  Report Type: Report from Study
  Country: US (occurrence: US)
  Receive Date: 20230504
  Receipt Date: 20230504
  Transmission Date: 20230721
  Serious: Yes (Hospitalization)
  Sender: FDA-Public Use
  Company Number: US-ABBVIE-4746231

PATIENT
  Sex: Female

DRUGS (1)
  1. HUMIRA [Suspect]
     Active Substance: ADALIMUMAB
     Indication: Product used for unknown indication
     Dosage: 40 MILLIGRAM?CITRATE FREE
     Route: 058

REACTIONS (3)
  - Respiratory failure [Unknown]
  - Joint swelling [Not Recovered/Not Resolved]
  - Joint range of motion decreased [Unknown]
